FAERS Safety Report 4348705-5 (Version None)
Quarter: 2004Q2

REPORT INFORMATION
  Report Type: 
  Country: None (occurrence: None)
  Receive Date: 20040423
  Receipt Date: 20040415
  Transmission Date: 20050107
  Serious: Yes (Death, Hospitalization)
  Sender: FDA-Public Use
  Company Number: US072363

PATIENT
  Age: 49 Year
  Sex: Male
  Weight: 73.3 kg

DRUGS (4)
  1. ETANERCEPT [Suspect]
     Indication: ALLOGENIC BONE MARROW TRANSPLANTATION THERAPY
     Dosage: 25 MG, 2 IN 1 WEEKS, SC
     Route: 058
     Dates: start: 20031107, end: 20040106
  2. BUSULFAN [Suspect]
     Dosage: 42 MG, 1 IN 1 DAYS,PO
     Route: 048
     Dates: start: 20031106, end: 20031109
  3. CYCLOPHOSPHAMIDE [Suspect]
     Dosage: 4860 MG, DAYS, IV
     Route: 042
     Dates: start: 20031110, end: 20031111
  4. METRONIDAZOLE [Concomitant]

REACTIONS (17)
  - ASPERGILLOSIS [None]
  - BALANCE DISORDER [None]
  - BRAIN ABSCESS [None]
  - BRAIN OEDEMA [None]
  - CEREBRAL HAEMORRHAGE [None]
  - CNS VENTRICULITIS [None]
  - COMPUTERISED TOMOGRAM ABNORMAL [None]
  - CONDITION AGGRAVATED [None]
  - DYSPNOEA [None]
  - FUNGAL INFECTION [None]
  - HEADACHE [None]
  - HEMIANOPIA [None]
  - HEMIPARESIS [None]
  - MENTAL STATUS CHANGES [None]
  - NUCLEAR MAGNETIC RESONANCE IMAGING BRAIN ABNORMAL [None]
  - PNEUMONIA [None]
  - SPEECH DISORDER [None]
